FAERS Safety Report 12173577 (Version 1)
Quarter: 2016Q1

REPORT INFORMATION
  Report Type: Spontaneous
  Country: US (occurrence: None)
  Receive Date: 20160311
  Receipt Date: 20160311
  Transmission Date: 20160526
  Serious: No
  Sender: FDA-Public Use
  Company Number: None

PATIENT
  Sex: Male

DRUGS (1)
  1. HUMIRA [Suspect]
     Active Substance: ADALIMUMAB
     Indication: COLITIS ULCERATIVE
     Dosage: 1 PEN (40MG) EVERY 14 DAYS SUBCUTANEOUSLY
     Route: 058
     Dates: start: 20140320

REACTIONS (1)
  - Oropharyngeal pain [None]
